FAERS Safety Report 14235069 (Version 1)
Quarter: 2017Q4

REPORT INFORMATION
  Report Type: Spontaneous
  Country: US (occurrence: US)
  Receive Date: 20171129
  Receipt Date: 20171129
  Transmission Date: 20180321
  Serious: No
  Sender: FDA-Public Use
  Company Number: US-009507513-1711USA010033

PATIENT
  Age: 88 Year
  Sex: Female

DRUGS (6)
  1. NASONEX [Suspect]
     Active Substance: MOMETASONE FUROATE
     Indication: RHINORRHOEA
     Dosage: UNK
     Route: 045
     Dates: start: 20171111
  2. LASIX [Concomitant]
     Active Substance: FUROSEMIDE
  3. METOPROLOL. [Concomitant]
     Active Substance: METOPROLOL
  4. POTASSIUM (UNSPECIFIED) [Concomitant]
     Active Substance: POTASSIUM
  5. FLOVENT [Concomitant]
     Active Substance: FLUTICASONE PROPIONATE
  6. ELIQUIS [Concomitant]
     Active Substance: APIXABAN

REACTIONS (3)
  - Epistaxis [Unknown]
  - Secretion discharge [Unknown]
  - Viral infection [Unknown]

NARRATIVE: CASE EVENT DATE: 201711
